FAERS Safety Report 4323526-8 (Version None)
Quarter: 2004Q1

REPORT INFORMATION
  Report Type: 
  Country: None (occurrence: None)
  Receive Date: 20040324
  Receipt Date: 20040324
  Transmission Date: 20041129
  Serious: Yes (Hospitalization)
  Sender: FDA-Public Use
  Company Number: None

PATIENT
  Age: 44 Year
  Sex: Female
  Weight: 74.8435 kg

DRUGS (4)
  1. PROVIGIL [Suspect]
     Indication: DEPRESSION
     Dosage: 100 MG DAILY ORAL
     Route: 048
     Dates: start: 20040217, end: 20040304
  2. PROVIGIL [Suspect]
     Indication: SOMNOLENCE
     Dosage: 100 MG DAILY ORAL
     Route: 048
     Dates: start: 20040217, end: 20040304
  3. EFFEXOR [Concomitant]
  4. WELLBUTRIN [Concomitant]

REACTIONS (6)
  - HEADACHE [None]
  - HEPATIC ENZYME INCREASED [None]
  - HYPOVOLAEMIA [None]
  - INFLUENZA LIKE ILLNESS [None]
  - PHOTOPHOBIA [None]
  - RASH [None]
